FAERS Safety Report 8548635-9 (Version None)
Quarter: 2012Q3

REPORT INFORMATION
  Report Type: 
  Country: None (occurrence: None)
  Receive Date: 20120730
  Receipt Date: 20120720
  Transmission Date: 20120928
  Serious: Yes (Other)
  Sender: FDA-Public Use
  Company Number: US-BAYER-2012-074383

PATIENT

DRUGS (1)
  1. ULTRAVIST 150 [Suspect]

REACTIONS (1)
  - CONTRAST MEDIA REACTION [None]
